FAERS Safety Report 15907989 (Version 1)
Quarter: 2019Q1

REPORT INFORMATION
  Report Type: Spontaneous
  Country: AU (occurrence: AU)
  Receive Date: 20190204
  Receipt Date: 20190204
  Transmission Date: 20190417
  Serious: Yes (Other)
  Sender: FDA-Public Use
  Company Number: AU-SA-2019SA023722

PATIENT
  Age: 66 Year
  Sex: Male

DRUGS (1)
  1. TAXOTERE [Suspect]
     Active Substance: DOCETAXEL
     Indication: NEOPLASM MALIGNANT
     Dosage: UNK UNK, UNK
     Route: 042
     Dates: start: 20180928, end: 20180928

REACTIONS (3)
  - Flushing [Unknown]
  - Nausea [Recovered/Resolved]
  - Photopsia [Unknown]

NARRATIVE: CASE EVENT DATE: 20180928
